FAERS Safety Report 7536405-X (Version None)
Quarter: 2011Q2

REPORT INFORMATION
  Report Type: 
  Country: None (occurrence: None)
  Receive Date: 20110609
  Receipt Date: 20110602
  Transmission Date: 20111010
  Serious: Yes (Other)
  Sender: FDA-Public Use
  Company Number: GB-US-EMD SERONO, INC.-230114J10GBR

PATIENT
  Sex: Female

DRUGS (1)
  1. REBIF [Suspect]
     Indication: PRODUCT USED FOR UNKNOWN INDICATION
     Route: 058
     Dates: start: 20100101, end: 20100101

REACTIONS (7)
  - FEAR OF NEEDLES [None]
  - LIVER FUNCTION TEST ABNORMAL [None]
  - INJECTION SITE SWELLING [None]
  - OPTIC NEURITIS [None]
  - INJECTION SITE IRRITATION [None]
  - INJECTION SITE ERYTHEMA [None]
  - INFLUENZA LIKE ILLNESS [None]
